FAERS Safety Report 7049588-5 (Version None)
Quarter: 2010Q4

REPORT INFORMATION
  Report Type: 
  Country: None (occurrence: None)
  Receive Date: 20101018
  Receipt Date: 20101004
  Transmission Date: 20110411
  Serious: Yes (Other)
  Sender: FDA-Public Use
  Company Number: US-BAYER-201013552NA

PATIENT
  Age: 29 Year
  Sex: Female
  Weight: 62 kg

DRUGS (4)
  1. YAZ [Suspect]
     Indication: CONTRACEPTION
     Dates: start: 20070901, end: 20071201
  2. YASMIN [Suspect]
     Indication: PRODUCT USED FOR UNKNOWN INDICATION
     Dates: start: 20070901, end: 20071201
  3. OCELLA [Suspect]
     Indication: PRODUCT USED FOR UNKNOWN INDICATION
     Dates: start: 20070901, end: 20071201
  4. PROVERA [Concomitant]
     Indication: AMENORRHOEA
     Dates: start: 20070901

REACTIONS (6)
  - ABORTION SPONTANEOUS [None]
  - CHEST PAIN [None]
  - DEEP VEIN THROMBOSIS [None]
  - INCISION SITE PAIN [None]
  - PREGNANCY TEST URINE POSITIVE [None]
  - VAGINAL HAEMORRHAGE [None]
